FAERS Safety Report 17866123 (Version 3)
Quarter: 2020Q4

REPORT INFORMATION
  Report Type: Spontaneous
  Country: AU (occurrence: AU)
  Receive Date: 20200605
  Receipt Date: 20201013
  Transmission Date: 20210113
  Serious: Yes (Hospitalization, Disabling, Other)
  Sender: FDA-Public Use
  Company Number: AU-009507513-2005AUS009741

PATIENT
  Age: 87 Year
  Sex: Male

DRUGS (16)
  1. BUPRENORPHINE. [Suspect]
     Active Substance: BUPRENORPHINE
     Dosage: 5 MILLIGRAM, QW; FORMULATION: PATCH
     Dates: start: 2017
  2. ACETAMINOPHEN. [Suspect]
     Active Substance: ACETAMINOPHEN
     Dosage: 500 MILLIGRAM; FREQUENCY REPORTED AS: PRN UP TO QDS
  3. ASPIRIN. [Suspect]
     Active Substance: ASPIRIN
     Dosage: 100 MILLIGRAM; FREQUENCY REPORTED AS MANE
  4. VALPROATE SODIUM. [Suspect]
     Active Substance: VALPROATE SODIUM
     Dosage: 200MG/5ML; FREQUENCY REPORTED AS: MANE
     Dates: start: 2017
  5. TIOTROPIUM BROMIDE [Suspect]
     Active Substance: TIOTROPIUM BROMIDE
     Dosage: 18 MICROGRAM; FREQUENCY REPORTED AS: MANE
  6. MIRTAZAPINE. [Suspect]
     Active Substance: MIRTAZAPINE
     Dosage: 15 MILLIGRAM; FREQUENCY REPORTED AS NOCTE
     Route: 048
  7. OXYCODONE [Suspect]
     Active Substance: OXYCODONE
     Dosage: 2.5 MILLIGRAM; FREQUENCY REPORTED AS: PRN UP TO QDS
  8. PERINDOPRIL [Suspect]
     Active Substance: PERINDOPRIL
     Dosage: 8 MILLIGRAM; FREQUENCY REPORTED AS MANE
  9. ATORVASTATIN [Suspect]
     Active Substance: ATORVASTATIN
     Dosage: 10 MILLIGRAM; FREQUENCY REPORTED AS MANE
  10. ACETAMINOPHEN. [Suspect]
     Active Substance: ACETAMINOPHEN
     Dosage: 500 MILLIGRAM; FREQUENCY REPORTED AS: QDS
  11. ALLOPURINOL. [Suspect]
     Active Substance: ALLOPURINOL
     Dosage: 300 MILLIGRAM; FREQUENCY REPORTED AS: MANE
  12. ALBUTEROL. [Suspect]
     Active Substance: ALBUTEROL
     Indication: CHRONIC OBSTRUCTIVE PULMONARY DISEASE
     Dosage: UNK, PRN (FREQUENCY REPORTED AS: USE AS REQUIRED)
  13. THIAMINE. [Suspect]
     Active Substance: THIAMINE
     Dosage: 100 MILLIGRAM; FREQUENCY REPORTED AS: MANE
  14. RISPERIDONE. [Suspect]
     Active Substance: RISPERIDONE
     Dosage: 0.25 MG; FREQUENCY REPORTED AS: BD
     Dates: start: 2017
  15. RISPERIDONE. [Suspect]
     Active Substance: RISPERIDONE
     Dosage: 0.5 MILLIGRAM; FREQUENCY REPORTED AS: PRN UP TO BD
     Dates: start: 2017
  16. ALBUTEROL. [Suspect]
     Active Substance: ALBUTEROL
     Dosage: UNK; FREQUENCY REPORTED AS: MANE
     Dates: start: 2017

REACTIONS (17)
  - Tardive dyskinesia [Unknown]
  - Dystonia [Unknown]
  - Delirium [Unknown]
  - Aptyalism [Unknown]
  - Mobility decreased [Unknown]
  - Feeding disorder [Unknown]
  - Muscle rigidity [Unknown]
  - Urinary tract infection [Unknown]
  - Sepsis [Unknown]
  - Sarcopenia [Unknown]
  - Cognitive disorder [Unknown]
  - Fall [Unknown]
  - Seizure [Unknown]
  - Fall [Unknown]
  - Rib fracture [Unknown]
  - Dysphagia [Unknown]
  - Mastication disorder [Unknown]

NARRATIVE: CASE EVENT DATE: 201612
